FAERS Safety Report 7725242-9 (Version None)
Quarter: 2011Q3

REPORT INFORMATION
  Report Type: 
  Country: None (occurrence: None)
  Receive Date: 20110902
  Receipt Date: 20110823
  Transmission Date: 20111222
  Serious: Yes (Hospitalization)
  Sender: FDA-Public Use
  Company Number: US-BIOGENIDEC-2011BI024681

PATIENT
  Age: 54 Year
  Sex: Female
  Weight: 158 kg

DRUGS (9)
  1. AMPHETAMINE AND DEXTROAMPHETAMINE SALTS [Concomitant]
     Indication: ATTENTION DEFICIT/HYPERACTIVITY DISORDER
     Dates: start: 19990101
  2. DETROL [Concomitant]
  3. BUPROPION HCL [Concomitant]
     Indication: ANXIETY
     Route: 048
  4. LYRICA [Concomitant]
     Indication: NEURALGIA
     Route: 048
     Dates: start: 20090101
  5. TYSABRI [Suspect]
     Indication: MULTIPLE SCLEROSIS
     Route: 042
     Dates: start: 20070730
  6. AMPYRA [Concomitant]
  7. BACLOFEN [Concomitant]
     Indication: MUSCLE SPASTICITY
     Route: 048
  8. MULTI-VITAMIN [Concomitant]
  9. LEXAPRO [Concomitant]
     Indication: DEPRESSION
     Route: 048

REACTIONS (3)
  - OBESITY [None]
  - PULMONARY EMBOLISM [None]
  - POSTOPERATIVE WOUND INFECTION [None]
